FAERS Safety Report 23756134 (Version 1)
Quarter: 2024Q2

REPORT INFORMATION
  Report Type: Spontaneous
  Country: US (occurrence: US)
  Receive Date: 20240418
  Receipt Date: 20240418
  Transmission Date: 20240716
  Serious: Yes (Other)
  Sender: FDA-Public Use
  Company Number: US-MLMSERVICE-20240328-4919551-1

PATIENT
  Age: 62 Year
  Sex: Male

DRUGS (1)
  1. AZATHIOPRINE [Suspect]
     Active Substance: AZATHIOPRINE
     Indication: Pericarditis
     Dosage: UNK
     Route: 065

REACTIONS (2)
  - Eosinophilic pneumonia [Unknown]
  - Acute respiratory failure [Unknown]
